FAERS Safety Report 25054760 (Version 1)
Quarter: 2025Q1

REPORT INFORMATION
  Report Type: Spontaneous
  Country: GB (occurrence: GB)
  Receive Date: 20250308
  Receipt Date: 20250308
  Transmission Date: 20250408
  Serious: Yes (Disabling, Other)
  Sender: TEVA
  Company Number: None

PATIENT
  Age: 39 Year
  Sex: Female

DRUGS (3)
  1. AMLODIPINE [Suspect]
     Active Substance: AMLODIPINE BESYLATE
     Indication: Adverse drug reaction
     Dosage: 5MG ONCE PER DAY IN THE MORNING
     Route: 065
  2. Betahistine Dehydrochloride [Concomitant]
     Indication: Adverse drug reaction
  3. RAMIPRIL [Concomitant]
     Active Substance: RAMIPRIL
     Indication: Adverse drug reaction

REACTIONS (1)
  - Migraine [Not Recovered/Not Resolved]

NARRATIVE: CASE EVENT DATE: 20250202
